FAERS Safety Report 18542694 (Version 9)
Quarter: 2023Q1

REPORT INFORMATION
  Report Type: Spontaneous
  Country: AU (occurrence: AU)
  Receive Date: 20201124
  Receipt Date: 20230209
  Transmission Date: 20230418
  Serious: Yes (Death, Hospitalization, Other)
  Sender: FDA-Public Use
  Company Number: AU-MYLANLABS-2020M1096727

PATIENT
  Age: 59 Year
  Sex: Female

DRUGS (13)
  1. CLOZARIL [Suspect]
     Active Substance: CLOZAPINE
     Indication: Schizophrenia
     Dosage: 150 MILLIGRAM (START DRUG: 08-JUL-1999)
     Route: 048
  2. VINORELBINE [Concomitant]
     Active Substance: VINORELBINE TARTRATE
     Indication: Non-small cell lung cancer
     Dosage: UNK, 21/7 CYCLE OF TREATMENT
     Route: 065
  3. VITAMIN D [Concomitant]
     Active Substance: VITAMIN D NOS
     Indication: Supplementation therapy
     Dosage: UNK, 21/7 CYCLE OF TREATMENT
     Route: 065
  4. CYCLIZINE [Concomitant]
     Active Substance: CYCLIZINE
     Indication: Nausea
     Dosage: 50 MILLIGRAM, TID (TDS)
     Route: 065
  5. BISOPROLOL [Concomitant]
     Active Substance: BISOPROLOL
     Indication: Cardiac dysfunction
     Dosage: 2.5 MILLIGRAM, PM (NOCTE)
     Route: 065
  6. BUDESONIDE [Concomitant]
     Active Substance: BUDESONIDE
     Indication: Obstructive airways disorder
     Dosage: 1 PUFF BD
     Route: 065
  7. CITALOPRAM [Concomitant]
     Active Substance: CITALOPRAM HYDROBROMIDE
     Indication: Affective disorder
     Dosage: 20 MILLIGRAM, QD (DAILY)
     Route: 065
  8. NALOXONE HYDROCHLORIDE\OXYCODONE HYDROCHLORIDE [Concomitant]
     Active Substance: NALOXONE HYDROCHLORIDE\OXYCODONE HYDROCHLORIDE
     Indication: Analgesic therapy
     Dosage: UNK, PM (NOCTE)
     Route: 065
  9. LACTULOSE [Concomitant]
     Active Substance: LACTULOSE
     Indication: Constipation
     Dosage: 20 MILLILITER, PM (20 ML NOCTE)
     Route: 065
  10. POLYETHYLENE GLYCOL 3350 [Concomitant]
     Active Substance: POLYETHYLENE GLYCOL 3350
     Indication: Constipation
     Dosage: 2 DOSAGE FORM, PM (2 SACHETS, NOCTE, PRN)
     Route: 065
  11. SITAGLIPTIN [Concomitant]
     Active Substance: SITAGLIPTIN
     Indication: Diabetes mellitus
     Dosage: 100 MILLIGRAM, AM (MANE)
     Route: 065
  12. ALBUTEROL [Concomitant]
     Active Substance: ALBUTEROL
     Indication: Obstructive airways disorder
     Dosage: 4 PUFFS QID PRN
  13. OXYCODONE [Concomitant]
     Active Substance: OXYCODONE
     Indication: Pain
     Dosage: QID, PRN
     Route: 065

REACTIONS (8)
  - Non-small cell lung cancer [Fatal]
  - Metastases to bone [Fatal]
  - Metastases to bone marrow [Fatal]
  - Malaise [Unknown]
  - SARS-CoV-2 test positive [Unknown]
  - White blood cell count decreased [Recovered/Resolved]
  - Neutrophil count decreased [Recovered/Resolved]
  - COVID-19 pneumonia [Recovered/Resolved]

NARRATIVE: CASE EVENT DATE: 20201117
